FAERS Safety Report 9883361 (Version 1)
Quarter: 2014Q1

REPORT INFORMATION
  Report Type: Spontaneous
  Country: US (occurrence: US)
  Receive Date: 20140210
  Receipt Date: 20140210
  Transmission Date: 20141002
  Serious: Yes (Other)
  Sender: FDA-Public Use
  Company Number: US-AMGEN-USASP2014008008

PATIENT
  Age: 68 Year
  Sex: Male

DRUGS (10)
  1. PROLIA [Suspect]
     Indication: OSTEOPENIA
     Dosage: UNK
     Route: 065
     Dates: start: 201306
  2. OMEPRAZOLE [Concomitant]
  3. AZILECT [Concomitant]
  4. NEUPRO [Concomitant]
  5. CARBIDOPA LEVODOPA [Concomitant]
  6. GABAPENTIN [Concomitant]
  7. FINASTERIDE [Concomitant]
  8. PROVIGIL                           /01265601/ [Concomitant]
  9. VITAMINS                           /00067501/ [Concomitant]
  10. ATORVASTATIN [Concomitant]

REACTIONS (3)
  - Parkinson^s disease [Unknown]
  - Arthralgia [Unknown]
  - Pain in extremity [Unknown]
